FAERS Safety Report 21789670 (Version 1)
Quarter: 2022Q4

REPORT INFORMATION
  Report Type: Spontaneous
  Country: PT (occurrence: PT)
  Receive Date: 20221228
  Receipt Date: 20221228
  Transmission Date: 20230113
  Serious: Yes (Hospitalization)
  Sender: FDA-Public Use
  Company Number: PT-DESMA-2022000016

PATIENT
  Sex: Male

DRUGS (16)
  1. FUROSEMIDE [Suspect]
     Active Substance: FUROSEMIDE
     Indication: Product used for unknown indication
     Dosage: FUROSEMIDE PRESCRIBED ON 18-APR-2022, 9-MAY-2022, 25-JUL-2022 AND 5-SEP-2022 AT A DOSAGE OF 2 (7H) A
     Dates: start: 2022
  2. DIULO [Suspect]
     Active Substance: METOLAZONE
     Indication: Product used for unknown indication
     Dosage: METOLAZONE PRESCRIBED ON 18-APR-2022 AT A DOSAGE OF 1/2 ? 3/5.
     Dates: start: 2022, end: 20220509
  3. DIULO [Interacting]
     Active Substance: METOLAZONE
     Indication: Product used for unknown indication
     Dosage: METOLAZONE PRESCRIBED ON 18-APR-2022 AT A DOSAGE OF 1/2 ? 3/5.
     Dates: start: 2022, end: 20220509
  4. LERCANIDIPINE [Concomitant]
     Active Substance: LERCANIDIPINE
     Indication: Product used for unknown indication
     Dosage: LERCANIDIPINE PRESCRIBED ON 18-APR-2022, AND 9-MAY-2022 AT A DOSAGE OF 10 (13H) +10 (24H), AND ON 25
  5. SPIRONOLACTONE [Concomitant]
     Active Substance: SPIRONOLACTONE
     Indication: Product used for unknown indication
     Dosage: ESPIRONOLACTON PRESCRIBED ON 18-APR-2022, 9-MAY-2022, 25-JUL-2022 AND 5-SEP-2022 AT A DOSAGE OF 100
  6. ALLOPURINOL [Concomitant]
     Active Substance: ALLOPURINOL
     Indication: Product used for unknown indication
     Dosage: ALOPURINOL 300 PRESCRIBED ON 18-APR-2022 AT A DOSAGE OF 1 (NOS), AND ON 25-JUL-2022 AND 5-SEP-2022 A
  7. ATORVASTATIN [Concomitant]
     Active Substance: ATORVASTATIN
     Indication: Product used for unknown indication
     Dosage: ATORVASTATIN PRESCRIBED ON 18-APR-2022, 9-MAY-2022 AND 5-SEP-2022 AT A DOSAGE OF 1 (NOS).
  8. TACROLIMUS [Concomitant]
     Active Substance: TACROLIMUS
     Indication: Product used for unknown indication
     Dosage: TACROLIMUS PRESCRIBED ON 18-APR-2022 AND ON 9-MAY-2022 AT A DOSAGE OF 1 + 0,5 (NOS), AND ON 25-JUL-2
  9. ETHYL LOFLAZEPATE [Concomitant]
     Active Substance: ETHYL LOFLAZEPATE
     Indication: Product used for unknown indication
     Dosage: VICTAN PRESCRIBED ON 18-APR-2022 AND 25-JUL-2022 AT A DOSAGE OF ? CP(SOJ) [SIC], AND ON 5-SEP-2022 A
  10. CLONIDINE [Concomitant]
     Active Substance: CLONIDINE
     Indication: Product used for unknown indication
     Dosage: CLONIDINE PRESCRIBED ON 18-APR-2022, 9-MAY-2022, AND 25-JUL-2022 AT A DOSAGE OF 1 AT 7H, 1 AT 15H AN
  11. MYCOPHENOLATE MOFETIL [Concomitant]
     Active Substance: MYCOPHENOLATE MOFETIL
     Indication: Product used for unknown indication
     Dosage: MMF PRESCRIBED ON 18-APR-2022, 9-MAY-2022, 25-JUL-2022 AND 5-SEP-2022 AT A DOSAGE OF 360X2 (NOS).
  12. Vigantol [Concomitant]
     Indication: Product used for unknown indication
     Dosage: VIGANTOL PRESCRIBED ON 18-APR-2022, 9-MAY-2022, 25-JUL-2022 AND 5-SEP-2022 AT A DOSAGE OF 5 DROPS.
  13. MAGNESIUM [Concomitant]
     Active Substance: MAGNESIUM
     Indication: Product used for unknown indication
     Dosage: MAGNESIO PRESCRIBED ON 9-MAY-2022, 25-JUL-2022 AND 5-SEP-2022 AT A DOSAGE OF 2X (NOS)
  14. PREDNISONE [Concomitant]
     Active Substance: PREDNISONE
     Indication: Product used for unknown indication
     Dosage: PDN (PREDNISON) PRESCRIBED ON 18-APR-2022 AND 9-MAY-2022 AT A DOSAGE OF 5:0 (NOS), AND ON 25-JUL-202
  15. CARVEDILOL [Concomitant]
     Active Substance: CARVEDILOL
     Indication: Product used for unknown indication
     Dosage: CARVEDILOL PRESCRIBED ON 18-APR-2022, 9-MAY-2022, 25-JUL-2022 AND 5-SEP-2022 AT A DOSAGE OF 25+25 (N
  16. ASPIRIN [Concomitant]
     Active Substance: ASPIRIN
     Indication: Product used for unknown indication
     Dosage: AAS 100 PRESCRIBED ON 18-APR-2022, 9-MAY-2022, 25-JUL-2022 AND 5-SEP-2022 AT A DOSAGE OF 1 (NOS).

REACTIONS (6)
  - Drug interaction [Not Recovered/Not Resolved]
  - Polydipsia [Not Recovered/Not Resolved]
  - Electrolyte imbalance [Not Recovered/Not Resolved]
  - Blood sodium decreased [Not Recovered/Not Resolved]
  - Vomiting [Not Recovered/Not Resolved]
  - Blood glucose increased [Not Recovered/Not Resolved]

NARRATIVE: CASE EVENT DATE: 20220101
